FAERS Safety Report 7306005-5 (Version None)
Quarter: 2011Q1

REPORT INFORMATION
  Report Type: 
  Country: None (occurrence: None)
  Receive Date: 20110222
  Receipt Date: 20110217
  Transmission Date: 20110831
  Serious: Yes (Hospitalization)
  Sender: FDA-Public Use
  Company Number: RO-ABBOTT-11P-135-0705837-00

PATIENT
  Sex: Male
  Weight: 62 kg

DRUGS (8)
  1. ZEMPLAR [Suspect]
     Indication: HYPERPARATHYROIDISM SECONDARY
     Route: 048
     Dates: start: 20101216, end: 20110115
  2. PENTOXIFILLINUM R [Concomitant]
     Indication: ARTERIAL DISORDER
     Route: 048
     Dates: start: 20101212
  3. NIFEDIPINUM R [Concomitant]
     Indication: HYPERTENSION
     Route: 048
  4. ZEMPLAR [Suspect]
     Indication: RENAL FAILURE CHRONIC
  5. SIMVASTATINUM [Concomitant]
     Indication: HYPERLIPIDAEMIA
     Route: 048
  6. LEVODOPA W/BENSERAZIDE [Concomitant]
     Indication: PARKINSON'S DISEASE
     Route: 048
  7. CLOPIDOGRETUM [Concomitant]
     Indication: RENAL ARTERY STENT PLACEMENT
     Route: 048
     Dates: start: 20101212
  8. ASPIRINUM [Concomitant]
     Indication: RENAL ARTERY STENT PLACEMENT
     Route: 048
     Dates: start: 20101212

REACTIONS (2)
  - EXTREMITY NECROSIS [None]
  - PERIPHERAL ISCHAEMIA [None]
